FAERS Safety Report 6166044-7 (Version None)
Quarter: 2009Q2

REPORT INFORMATION
  Report Type: 
  Country: None (occurrence: None)
  Receive Date: 20090424
  Receipt Date: 20090317
  Transmission Date: 20091009
  Serious: Yes (Death)
  Sender: FDA-Public Use
  Company Number: JP-JNJFOC-20090405424

PATIENT
  Sex: Female

DRUGS (6)
  1. DORIPENEM MONOHYDRATE [Suspect]
     Indication: DRUG USE FOR UNKNOWN INDICATION
     Route: 065
  2. ERYTHROMYCIN [Suspect]
     Indication: PNEUMONIA
     Route: 065
  3. CEFMETAZOLE [Suspect]
     Indication: PNEUMONIA
     Route: 065
  4. MEROPENEM [Suspect]
     Indication: PNEUMONIA
     Route: 065
  5. KLARICID [Suspect]
     Indication: PNEUMONIA
     Route: 065
  6. DOXAPRAM HYDROCHLORIDE [Suspect]
     Indication: DRUG USE FOR UNKNOWN INDICATION
     Route: 065

REACTIONS (4)
  - DEPRESSED LEVEL OF CONSCIOUSNESS [None]
  - HEPATIC FAILURE [None]
  - HEPATITIS FULMINANT [None]
  - RESPIRATORY FAILURE [None]
